FAERS Safety Report 10610697 (Version 1)
Quarter: 2014Q4

REPORT INFORMATION
  Report Type: Report from Study
  Country: JP (occurrence: JP)
  Receive Date: 20141126
  Receipt Date: 20141126
  Transmission Date: 20150529
  Serious: Yes (Hospitalization)
  Sender: FDA-Public Use
  Company Number: JP-TEVA-525452USA

PATIENT
  Age: 16 Year
  Sex: Female
  Weight: 39 kg

DRUGS (5)
  1. HORIZON (DIAZEPAM) [Concomitant]
     Indication: SCHOOL REFUSAL
  2. GALZIN [Suspect]
     Active Substance: ZINC ACETATE
     Indication: HEPATO-LENTICULAR DEGENERATION
     Route: 048
     Dates: start: 20111024
  3. JZOLOFT (SERTRALINE HYDROCHLORIDE) [Concomitant]
     Indication: SCHOOL REFUSAL
  4. JZOLOFT (SERTRALINE HYDROCHLORIDE) [Concomitant]
     Indication: ANXIETY
  5. HORIZON (DIAZEPAM) [Concomitant]
     Indication: ANXIETY

REACTIONS (1)
  - Pyrexia [Recovering/Resolving]

NARRATIVE: CASE EVENT DATE: 20141013
